FAERS Safety Report 6973034-0 (Version None)
Quarter: 2010Q3

REPORT INFORMATION
  Report Type: 
  Country: None (occurrence: None)
  Receive Date: 20100909
  Receipt Date: 20100830
  Transmission Date: 20110219
  Serious: Yes (Other)
  Sender: FDA-Public Use
  Company Number: AU-PFIZER INC-2010108613

PATIENT
  Sex: Male

DRUGS (1)
  1. MINIPRESS [Suspect]
     Dosage: 1 MG, UNK
     Route: 048

REACTIONS (2)
  - URINARY RETENTION [None]
  - WITHDRAWAL SYNDROME [None]
